FAERS Safety Report 6126838-0 (Version None)
Quarter: 2009Q1

REPORT INFORMATION
  Report Type: 
  Country: None (occurrence: None)
  Receive Date: 20090320
  Receipt Date: 20080721
  Transmission Date: 20090719
  Serious: No
  Sender: FDA-Public Use
  Company Number: US-ABBOTT-08P-163-0465090-00

PATIENT
  Sex: Female
  Weight: 99.88 kg

DRUGS (1)
  1. ERYTHROMYCIN [Suspect]
     Indication: EAR INFECTION
     Route: 048
     Dates: start: 19900101, end: 19900101

REACTIONS (3)
  - DYSPNOEA [None]
  - RASH [None]
  - SWELLING [None]
